FAERS Safety Report 21068875 (Version 1)
Quarter: 2022Q3

REPORT INFORMATION
  Report Type: Spontaneous
  Country: US (occurrence: None)
  Receive Date: 20220711
  Receipt Date: 20220711
  Transmission Date: 20221026
  Serious: Yes (Hospitalization)
  Sender: FDA-Public Use
  Company Number: None

PATIENT
  Age: 41 Year
  Sex: Male
  Weight: 76 kg

DRUGS (1)
  1. EVUSHELD [Suspect]
     Active Substance: CILGAVIMAB\TIXAGEVIMAB
     Indication: COVID-19
     Dosage: FREQUENCY : ONCE;?
     Route: 030
     Dates: start: 20220630

REACTIONS (5)
  - Dermatitis exfoliative generalised [None]
  - Tongue erythema [None]
  - Swollen tongue [None]
  - Cough [None]
  - Acute kidney injury [None]

NARRATIVE: CASE EVENT DATE: 20220630
